FAERS Safety Report 7265921-3 (Version None)
Quarter: 2011Q1

REPORT INFORMATION
  Report Type: 
  Country: None (occurrence: None)
  Receive Date: 20110131
  Receipt Date: 20110124
  Transmission Date: 20110831
  Serious: Yes (Other)
  Sender: FDA-Public Use
  Company Number: B0696930A

PATIENT
  Age: 49 Year
  Sex: Female

DRUGS (4)
  1. CARVEDILOL [Suspect]
     Indication: HYPERTENSION
     Route: 048
  2. HYDROCHLOROTHIAZIDE + RAMIPRIL [Suspect]
     Indication: HYPERTENSION
     Route: 048
  3. XELODA [Suspect]
     Route: 048
  4. TYVERB [Suspect]
     Route: 048
     Dates: start: 20100927

REACTIONS (2)
  - JAUNDICE [None]
  - YELLOW SKIN [None]
